FAERS Safety Report 24090855 (Version 6)
Quarter: 2025Q2

REPORT INFORMATION
  Report Type: Spontaneous
  Country: CA (occurrence: CA)
  Receive Date: 20240715
  Receipt Date: 20250425
  Transmission Date: 20250717
  Serious: Yes (Hospitalization, Other)
  Sender: PFIZER
  Company Number: CA-PFIZER INC-202400211184

PATIENT
  Age: 57 Year
  Sex: Female

DRUGS (3)
  1. RUXIENCE [Suspect]
     Active Substance: RITUXIMAB-PVVR
     Indication: Rheumatoid arthritis
     Route: 042
     Dates: start: 20240109
  2. RUXIENCE [Suspect]
     Active Substance: RITUXIMAB-PVVR
     Route: 042
     Dates: start: 20240123
  3. PREDNISONE [Concomitant]
     Active Substance: PREDNISONE

REACTIONS (7)
  - Post procedural complication [Not Recovered/Not Resolved]
  - Hernia [Not Recovered/Not Resolved]
  - Postoperative wound infection [Unknown]
  - Immune system disorder [Unknown]
  - Nausea [Unknown]
  - Dizziness [Unknown]
  - Condition aggravated [Unknown]
